FAERS Safety Report 13371707 (Version 2)
Quarter: 2017Q2

REPORT INFORMATION
  Report Type: Spontaneous
  Country: CO (occurrence: CO)
  Receive Date: 20170325
  Receipt Date: 20170428
  Transmission Date: 20170830
  Serious: Yes (Other)
  Sender: FDA-Public Use
  Company Number: CO-AMGEN-COLSP2017044922

PATIENT
  Age: 57 Year
  Sex: Female

DRUGS (4)
  1. ENBREL [Suspect]
     Active Substance: ETANERCEPT
     Dosage: 50 MG, WEEKLY
     Route: 058
     Dates: start: 20120217, end: 20131119
  2. ENBREL [Suspect]
     Active Substance: ETANERCEPT
     Dosage: 50 MG, EVERY 10 DAYS
     Route: 058
     Dates: start: 20131119, end: 20160317
  3. ENBREL [Suspect]
     Active Substance: ETANERCEPT
     Dosage: 50 MG, EVERY 14 DAYS
     Route: 058
     Dates: start: 20170317
  4. ENBREL [Suspect]
     Active Substance: ETANERCEPT
     Indication: RHEUMATOID ARTHRITIS
     Dosage: 50 MG, UNK
     Route: 058
     Dates: start: 2012, end: 201701

REACTIONS (7)
  - Headache [Unknown]
  - Pterygium [Recovered/Resolved]
  - Eye inflammation [Recovered/Resolved]
  - Eye pain [Recovered/Resolved]
  - Lacrimation increased [Recovered/Resolved]
  - Condition aggravated [Recovered/Resolved]
  - Ocular hyperaemia [Recovered/Resolved]

NARRATIVE: CASE EVENT DATE: 2016
